FAERS Safety Report 7904657-X (Version None)
Quarter: 2011Q4

REPORT INFORMATION
  Report Type: 
  Country: None (occurrence: None)
  Receive Date: 20111109
  Receipt Date: 20111031
  Transmission Date: 20120403
  Serious: Yes (Death)
  Sender: FDA-Public Use
  Company Number: US-GLAXOSMITHKLINE-A0950761A

PATIENT
  Age: 74 Year
  Sex: Female

DRUGS (21)
  1. ACETYLCYSTEINE [Concomitant]
  2. LACTOBACILLUS [Concomitant]
  3. VANCOMYCIN [Concomitant]
  4. SENNA [Concomitant]
  5. CORTICOSTEROIDS [Concomitant]
     Indication: IDIOPATHIC THROMBOCYTOPENIC PURPURA
     Dates: start: 20050406
  6. DILTIAZEM HCL [Concomitant]
  7. DUONEB [Concomitant]
  8. ALBUTEROL [Concomitant]
  9. NYSTATIN [Concomitant]
  10. LOVENOX [Concomitant]
  11. MILK OF MAGNESIA TAB [Concomitant]
  12. LIPITOR [Concomitant]
  13. PROMACTA [Suspect]
     Indication: IDIOPATHIC THROMBOCYTOPENIC PURPURA
     Dosage: 50MG PER DAY
     Dates: start: 20110803, end: 20110829
  14. OMEPRAZOLE [Concomitant]
  15. SPIRONOLACTONE [Concomitant]
  16. PREDNISONE [Concomitant]
  17. INSULIN [Concomitant]
  18. NEURONTIN [Concomitant]
  19. DIGOXIN [Concomitant]
  20. ACETAMINOPHEN [Concomitant]
  21. KEPPRA [Concomitant]

REACTIONS (6)
  - CARDIO-RESPIRATORY ARREST [None]
  - PNEUMONIA [None]
  - SEPSIS [None]
  - CARDIAC FAILURE CONGESTIVE [None]
  - CHRONIC OBSTRUCTIVE PULMONARY DISEASE [None]
  - RESPIRATORY DISTRESS [None]
